FAERS Safety Report 5480152-5 (Version None)
Quarter: 2007Q4

REPORT INFORMATION
  Report Type: 
  Country: None (occurrence: None)
  Receive Date: 20071009
  Receipt Date: 20070927
  Transmission Date: 20080405
  Serious: Yes (Other)
  Sender: FDA-Public Use
  Company Number: US-JNJFOC-20070805992

PATIENT
  Sex: Male
  Weight: 31.75 kg

DRUGS (5)
  1. RISPERDAL [Suspect]
     Indication: DEPRESSION
     Route: 048
  2. RISPERDAL [Suspect]
     Indication: ANXIETY
     Route: 048
  3. RISPERDAL [Suspect]
     Indication: AUTISM
     Route: 048
  4. DEPAKOTE [Concomitant]
     Indication: CONVULSION
     Route: 048
  5. ZYRTEC [Concomitant]
     Indication: MULTIPLE ALLERGIES

REACTIONS (8)
  - CROHN'S DISEASE [None]
  - DROOLING [None]
  - DYSKINESIA [None]
  - HALLUCINATION [None]
  - NIGHTMARE [None]
  - PANCREATITIS [None]
  - TARDIVE DYSKINESIA [None]
  - WEIGHT INCREASED [None]
